FAERS Safety Report 19079415 (Version 1)
Quarter: 2021Q1

REPORT INFORMATION
  Report Type: Spontaneous
  Country: FR (occurrence: FR)
  Receive Date: 20210331
  Receipt Date: 20210331
  Transmission Date: 20210420
  Serious: Yes (Hospitalization)
  Sender: FDA-Public Use
  Company Number: NVSC2021FR064139

PATIENT
  Age: 36 Year
  Sex: Male

DRUGS (5)
  1. SERESTA [Suspect]
     Active Substance: OXAZEPAM
     Indication: SUICIDE ATTEMPT
     Dosage: 400 MG (50MG X8)
     Route: 065
     Dates: start: 20210116, end: 20210116
  2. ANEXATE [Suspect]
     Active Substance: FLUMAZENIL
     Indication: PRODUCT USED FOR UNKNOWN INDICATION
     Dosage: 0.2 MG
     Route: 065
     Dates: start: 20210116
  3. VALIUM [Suspect]
     Active Substance: DIAZEPAM
     Indication: SUICIDE ATTEMPT
     Dosage: 20 MG (10 MG X2).
     Route: 065
     Dates: start: 20210116, end: 20210116
  4. BROMAZEPAM [Suspect]
     Active Substance: BROMAZEPAM
     Indication: SUICIDE ATTEMPT
     Dosage: 96 MG (6MG X16)
     Route: 065
     Dates: start: 20210116, end: 20210116
  5. ALPRAZOLAM. [Suspect]
     Active Substance: ALPRAZOLAM
     Indication: SUICIDE ATTEMPT
     Dosage: 0.5 MG (0.25MG X 2)
     Route: 065
     Dates: start: 20210116, end: 20210116

REACTIONS (4)
  - Agitation [Unknown]
  - Malaise [Unknown]
  - Somnolence [Recovered/Resolved]
  - Syncope [Unknown]

NARRATIVE: CASE EVENT DATE: 20210116
